FAERS Safety Report 16379384 (Version 2)
Quarter: 2019Q2

REPORT INFORMATION
  Report Type: Spontaneous
  Country: BR (occurrence: BR)
  Receive Date: 20190531
  Receipt Date: 20190605
  Transmission Date: 20190711
  Serious: Yes (Other)
  Sender: FDA-Public Use
  Company Number: BR-PFIZER INC-2019222430

PATIENT
  Age: 48 Year
  Sex: Female

DRUGS (11)
  1. EFEXOR [Concomitant]
     Active Substance: VENLAFAXINE HYDROCHLORIDE
     Dosage: 150 MG, 1 TABLET IN THE MORNING
  2. LYRICA [Suspect]
     Active Substance: PREGABALIN
     Indication: INTERVERTEBRAL DISC PROTRUSION
     Dosage: 75 MG, 1 CAPSULE PER DAY
     Dates: start: 2008
  3. LIPITOR [Concomitant]
     Active Substance: ATORVASTATIN CALCIUM
     Indication: BLOOD CHOLESTEROL ABNORMAL
     Dosage: 10 MG, DAILY
     Dates: start: 2016
  4. EFEXOR [Concomitant]
     Active Substance: VENLAFAXINE HYDROCHLORIDE
     Dosage: 75 MG, 1 TABLET IN THE MORNING
  5. LYRICA [Suspect]
     Active Substance: PREGABALIN
     Indication: SPINAL PAIN
     Dosage: AT 75 MG, 2X/DAY (1 CAPSULE IN THE MORNING, 1 CAPSULE AT NIGHT)
  6. LYRICA [Suspect]
     Active Substance: PREGABALIN
     Dosage: 75 MG, DAILY
  7. LIPITOR [Concomitant]
     Active Substance: ATORVASTATIN CALCIUM
     Indication: BLOOD TRIGLYCERIDES ABNORMAL
  8. RIVOTRIL [Concomitant]
     Active Substance: CLONAZEPAM
     Dosage: 35 DROPS, DAILY
  9. RIVOTRIL [Concomitant]
     Active Substance: CLONAZEPAM
     Dosage: 22 DROPS, DAILY
  10. EFEXOR [Concomitant]
     Active Substance: VENLAFAXINE HYDROCHLORIDE
     Indication: DEPRESSED MOOD
     Dosage: AT NIGHT
  11. EFEXOR [Concomitant]
     Active Substance: VENLAFAXINE HYDROCHLORIDE
     Dosage: AT NIGHT

REACTIONS (14)
  - Anxiety [Unknown]
  - Off label use [Recovered/Resolved]
  - Drug ineffective [Unknown]
  - Pain in extremity [Unknown]
  - Insomnia [Unknown]
  - Ankylosing spondylitis [Unknown]
  - Limb injury [Unknown]
  - Inflammation [Unknown]
  - Dengue fever [Unknown]
  - Intervertebral disc protrusion [Not Recovered/Not Resolved]
  - Tendonitis [Unknown]
  - Fall [Unknown]
  - Musculoskeletal pain [Unknown]
  - Condition aggravated [Not Recovered/Not Resolved]

NARRATIVE: CASE EVENT DATE: 2008
